FAERS Safety Report 22075620 (Version 2)
Quarter: 2023Q1

REPORT INFORMATION
  Report Type: Spontaneous
  Country: US (occurrence: US)
  Receive Date: 20230308
  Receipt Date: 20230314
  Transmission Date: 20230418
  Serious: No
  Sender: FDA-Public Use
  Company Number: US-Calliditas-2023CAL00212

PATIENT
  Age: 48 Year
  Sex: Male

DRUGS (7)
  1. TARPEYO [Suspect]
     Active Substance: BUDESONIDE
     Indication: IgA nephropathy
     Dosage: 16 MG (4 MG CAPSULES) ONCE DAILY
     Route: 048
     Dates: start: 20220818
  2. CHOLECALCIFEROL [Concomitant]
     Active Substance: CHOLECALCIFEROL
  3. FISH OIL [Concomitant]
     Active Substance: FISH OIL
  4. VASCEPA [Concomitant]
     Active Substance: ICOSAPENT ETHYL
  5. VITAMIN B-COMPLEX, PLAIN [Concomitant]
  6. COLCHICINE [Concomitant]
     Active Substance: COLCHICINE
  7. LISINOPRIL [Concomitant]
     Active Substance: LISINOPRIL
     Dosage: INCREASED TO 40 MG

REACTIONS (1)
  - Hypertension [Not Recovered/Not Resolved]

NARRATIVE: CASE EVENT DATE: 20220901
